FAERS Safety Report 5145552-1 (Version None)
Quarter: 2006Q4

REPORT INFORMATION
  Report Type: 
  Country: None (occurrence: None)
  Receive Date: 20061101
  Receipt Date: 20061019
  Transmission Date: 20070319
  Serious: Yes (Hospitalization, Other)
  Sender: FDA-Public Use
  Company Number: 163-21880-06100240

PATIENT
  Age: 49 Year
  Sex: Male

DRUGS (1)
  1. REVLIMID [Suspect]
     Indication: MULTIPLE MYELOMA
     Dosage: 10 MG, 1 IN 1 D, ORAL
     Route: 048
     Dates: start: 20060717

REACTIONS (7)
  - ARTHRALGIA [None]
  - BONE PAIN [None]
  - BRONCHOSPASM [None]
  - COUGH [None]
  - FATIGUE [None]
  - MYALGIA [None]
  - THYROIDECTOMY [None]
